FAERS Safety Report 19673162 (Version 2)
Quarter: 2021Q3

REPORT INFORMATION
  Report Type: Spontaneous
  Country: PL (occurrence: PL)
  Receive Date: 20210809
  Receipt Date: 20210823
  Transmission Date: 20211014
  Serious: Yes (Other)
  Sender: FDA-Public Use
  Company Number: PL-BEH-2021134462

PATIENT
  Sex: Female
  Weight: 3.19 kg

DRUGS (6)
  1. RHOPHYLAC [Suspect]
     Active Substance: HUMAN RHO(D) IMMUNE GLOBULIN
     Indication: PRODUCT USED FOR UNKNOWN INDICATION
     Route: 065
  2. PEPCID [Concomitant]
     Active Substance: FAMOTIDINE
     Route: 064
  3. KEFALEXIN [Concomitant]
     Route: 064
  4. PARACETAMOL [Concomitant]
     Active Substance: ACETAMINOPHEN
     Route: 064
  5. RHOPHYLAC [Suspect]
     Active Substance: HUMAN RHO(D) IMMUNE GLOBULIN
     Indication: PRODUCT USED FOR UNKNOWN INDICATION
     Route: 065
  6. PIVMECILLINAM [Concomitant]
     Active Substance: AMDINOCILLIN PIVOXIL
     Route: 064

REACTIONS (2)
  - Foetal exposure during pregnancy [Unknown]
  - Foetal growth restriction [Unknown]
